FAERS Safety Report 7131436-6 (Version None)
Quarter: 2010Q4

REPORT INFORMATION
  Report Type: 
  Country: None (occurrence: None)
  Receive Date: 20101201
  Receipt Date: 20101119
  Transmission Date: 20110411
  Serious: Yes (Other)
  Sender: FDA-Public Use
  Company Number: PHHY2010DE81243

PATIENT
  Sex: Female
  Weight: 66 kg

DRUGS (3)
  1. CGS 20267 T30748+ [Suspect]
     Indication: BREAST CANCER
     Dosage: 2.5 MG DAILY
     Route: 048
     Dates: start: 20090615
  2. HERCEPTIN [Concomitant]
     Dosage: UNK
     Dates: start: 20100120, end: 20100730
  3. ZOMETA [Concomitant]
     Dosage: UNK
     Dates: start: 20100730

REACTIONS (2)
  - CARDIAC DISORDER [None]
  - EJECTION FRACTION DECREASED [None]
